FAERS Safety Report 13925291 (Version 5)
Quarter: 2018Q1

REPORT INFORMATION
  Report Type: Report from Study
  Country: BR (occurrence: BR)
  Receive Date: 20170831
  Receipt Date: 20180207
  Transmission Date: 20180508
  Serious: Yes (Hospitalization, Other)
  Sender: FDA-Public Use
  Company Number: PHHY2017BR075452

PATIENT
  Age: 64 Year
  Sex: Female
  Weight: 75 kg

DRUGS (6)
  1. TECNOMET [Concomitant]
     Active Substance: METHOTREXATE
     Indication: PSORIATIC ARTHROPATHY
     Dosage: 20 MG, QW
     Route: 048
  2. COSENTYX [Suspect]
     Active Substance: SECUKINUMAB
     Dosage: 2 DF, QMO
     Route: 065
     Dates: start: 20170808, end: 201711
  3. COSENTYX [Suspect]
     Active Substance: SECUKINUMAB
     Indication: PSORIATIC ARTHROPATHY
     Dosage: 2 DF, QMO
     Route: 065
     Dates: start: 201610
  4. ASA [Concomitant]
     Active Substance: ASPIRIN
     Indication: PRODUCT USED FOR UNKNOWN INDICATION
     Dosage: 100 MG, QD
     Route: 048
  5. PONDERA [Concomitant]
     Active Substance: PAROXETINE HYDROCHLORIDE
     Indication: DEPRESSION
     Dosage: 10 MG, QD
     Route: 048
     Dates: start: 201605
  6. COSENTYX [Suspect]
     Active Substance: SECUKINUMAB
     Indication: PSORIASIS
     Dosage: 2 DF, QMO
     Route: 065
     Dates: start: 20170616

REACTIONS (11)
  - Myocardial infarction [Recovering/Resolving]
  - Scab [Unknown]
  - Psoriasis [Unknown]
  - Drug effect incomplete [Unknown]
  - Chronic obstructive pulmonary disease [Unknown]
  - Haematochezia [Recovering/Resolving]
  - Respiratory failure [Recovering/Resolving]
  - Gastritis haemorrhagic [Recovering/Resolving]
  - Skin disorder [Unknown]
  - Anaemia [Recovering/Resolving]
  - Wound [Unknown]

NARRATIVE: CASE EVENT DATE: 201706
